FAERS Safety Report 4639230-2 (Version None)
Quarter: 2005Q2

REPORT INFORMATION
  Report Type: 
  Country: None (occurrence: None)
  Receive Date: 20050418
  Receipt Date: 20050405
  Transmission Date: 20051028
  Serious: Yes (Death, Other)
  Sender: FDA-Public Use
  Company Number: JP-2005-003567

PATIENT
  Age: 52 Year
  Sex: Female

DRUGS (4)
  1. FLUDARA [Suspect]
     Indication: CORD BLOOD TRANSPLANT THERAPY
     Dosage: 30 MG/M2, 1X/DAY, INTRAVENOUS
     Route: 042
     Dates: start: 20040301, end: 20040301
  2. MELPHALAN (MELPHALAN) [Concomitant]
  3. FK 506 (TACROLIMUS) [Concomitant]
  4. MYCOPHENOLATE MOFETIL (MYCOPHENOLATE MOFETIL) [Concomitant]

REACTIONS (7)
  - ENDOTHELIAL DYSFUNCTION [None]
  - ENGRAFTMENT SYNDROME [None]
  - HAEMORRHAGIC CEREBRAL INFARCTION [None]
  - LOSS OF CONSCIOUSNESS [None]
  - RENAL DISORDER [None]
  - RESTLESSNESS [None]
  - THROMBOTIC MICROANGIOPATHY [None]
